FAERS Safety Report 5541722-9 (Version None)
Quarter: 2008Q1

REPORT INFORMATION
  Report Type: 
  Country: None (occurrence: None)
  Receive Date: 20071210
  Receipt Date: 20071001
  Transmission Date: 20080703
  Serious: Yes (Life-Threatening, Hospitalization, Other)
  Sender: FDA-Public Use
  Company Number: JP-BRISTOL-MYERS SQUIBB COMPANY-13920905

PATIENT
  Age: 65 Year
  Sex: Female

DRUGS (5)
  1. MAXIPIME [Suspect]
     Indication: FEBRILE NEUTROPENIA
     Route: 041
     Dates: start: 20070917, end: 20070919
  2. CYCLOPHOSPHAMIDE [Suspect]
     Indication: BREAST CANCER
     Dosage: 700 MG 03-SEP-2007 TO 03-SEP-2007. THERAPY DURATION 22 DAYS.
     Route: 041
     Dates: start: 20070813, end: 20070813
  3. EPIRUBICIN HCL [Suspect]
     Indication: BREAST CANCER
     Dosage: 90 MG; IVDRI ON 03-SEP-2007 TO 03-SEP-2007. THERAPY DURATION 22 DAYS.
     Route: 041
     Dates: start: 20070813, end: 20070813
  4. GRAN [Suspect]
     Indication: NEUTROPHIL COUNT DECREASED
     Dosage: ONE DOSAGE FORM = 75 UG FROM 20-AUG-27-AUG AND 17-SEP-2007 TO 19-SEP-2007.
     Dates: start: 20070820, end: 20070827
  5. GRAN [Suspect]
     Indication: FEBRILE NEUTROPENIA
     Dosage: ONE DOSAGE FORM = 75 UG FROM 20-AUG-27-AUG AND 17-SEP-2007 TO 19-SEP-2007.
     Dates: start: 20070820, end: 20070827

REACTIONS (4)
  - FEBRILE NEUTROPENIA [None]
  - HAEMOGLOBIN DECREASED [None]
  - INTERSTITIAL LUNG DISEASE [None]
  - NEUTROPHIL COUNT DECREASED [None]
